FAERS Safety Report 5611030-6 (Version None)
Quarter: 2008Q1

REPORT INFORMATION
  Report Type: 
  Country: None (occurrence: None)
  Receive Date: 20080201
  Receipt Date: 20080121
  Transmission Date: 20080703
  Serious: Yes (Hospitalization)
  Sender: FDA-Public Use
  Company Number: B0505649A

PATIENT
  Age: 16 Month
  Sex: Male
  Weight: 9 kg

DRUGS (1)
  1. ZINNAT [Suspect]
     Route: 048
     Dates: start: 20080116, end: 20080117

REACTIONS (2)
  - EXPIRED DRUG ADMINISTERED [None]
  - VOMITING [None]
